FAERS Safety Report 7074214-9 (Version None)
Quarter: 2010Q4

REPORT INFORMATION
  Report Type: 
  Country: None (occurrence: None)
  Receive Date: 20101029
  Receipt Date: 20101020
  Transmission Date: 20110411
  Serious: Yes (Hospitalization)
  Sender: FDA-Public Use
  Company Number: TH-ROCHE-735625

PATIENT
  Age: 81 Year
  Sex: Female

DRUGS (5)
  1. MIRCERA [Suspect]
     Route: 058
     Dates: start: 20091019, end: 20091204
  2. MIRCERA [Suspect]
     Route: 058
     Dates: start: 20091204, end: 20100504
  3. MIRCERA [Suspect]
     Route: 058
     Dates: start: 20100504, end: 20100805
  4. MIRCERA [Suspect]
     Route: 058
     Dates: start: 20100805, end: 20100822
  5. RECORMON [Suspect]
     Route: 065
     Dates: start: 20100902, end: 20100913

REACTIONS (2)
  - NAUSEA [None]
  - VOMITING [None]
